FAERS Safety Report 23533220 (Version 1)
Quarter: 2024Q1

REPORT INFORMATION
  Report Type: Report from Study
  Country: US (occurrence: US)
  Receive Date: 20240216
  Receipt Date: 20240216
  Transmission Date: 20240409
  Serious: Yes (Other)
  Sender: FDA-Public Use
  Company Number: US-Pharmaand-2024000067

PATIENT
  Sex: Female
  Weight: 92.7 kg

DRUGS (1)
  1. RUBRACA [Suspect]
     Active Substance: RUCAPARIB CAMSYLATE
     Indication: Malignant peritoneal neoplasm
     Dosage: 600 MG TWICE DAILY
     Route: 048
     Dates: start: 20231107

REACTIONS (1)
  - Bronchitis [Not Recovered/Not Resolved]
